FAERS Safety Report 10609999 (Version 2)
Quarter: 2014Q4

REPORT INFORMATION
  Report Type: Spontaneous
  Country: US (occurrence: US)
  Receive Date: 20141126
  Receipt Date: 20141231
  Transmission Date: 20150529
  Serious: No
  Sender: FDA-Public Use
  Company Number: US-PFIZER INC-2014320884

PATIENT
  Age: 73 Year
  Sex: Male

DRUGS (1)
  1. SUTENT [Suspect]
     Active Substance: SUNITINIB MALATE
     Dosage: UNK, CYCLIC (2WEEK ON, 1 WEEK OFF)

REACTIONS (4)
  - Pleural fibrosis [Unknown]
  - Dysgeusia [Unknown]
  - Stomatitis [Unknown]
  - Pyrexia [Unknown]
